FAERS Safety Report 6218797-7 (Version None)
Quarter: 2009Q2

REPORT INFORMATION
  Report Type: 
  Country: None (occurrence: None)
  Receive Date: 20090608
  Receipt Date: 20090525
  Transmission Date: 20091009
  Serious: Yes (Hospitalization, Other)
  Sender: FDA-Public Use
  Company Number: SE-ELI_LILLY_AND_COMPANY-SE200906000924

PATIENT
  Age: 60 Year
  Sex: Female

DRUGS (7)
  1. ZYPREXA [Suspect]
     Indication: BIPOLAR I DISORDER
     Dosage: 10 MG, DAILY (1/D)
     Route: 030
     Dates: start: 20061101, end: 20070527
  2. SEROQUEL [Concomitant]
     Indication: BIPOLAR I DISORDER
     Dosage: 100 MG, DAILY (1/D)
     Route: 048
     Dates: end: 20070527
  3. CYMBALTA [Concomitant]
  4. OXASCAND [Concomitant]
  5. MIANSERIN [Concomitant]
  6. ZOPIKLON [Concomitant]
  7. ZINACEF [Concomitant]

REACTIONS (18)
  - AMNESIA [None]
  - BLOOD CREATINE PHOSPHOKINASE INCREASED [None]
  - BLOOD LACTATE DEHYDROGENASE INCREASED [None]
  - BLOOD SODIUM DECREASED [None]
  - C-REACTIVE PROTEIN INCREASED [None]
  - CONFUSIONAL STATE [None]
  - ELECTROCARDIOGRAM QT PROLONGED [None]
  - HYPERTHERMIA [None]
  - HYPERTONIA [None]
  - LIPIDS INCREASED [None]
  - MUSCLE RIGIDITY [None]
  - NEUROLEPTIC MALIGNANT SYNDROME [None]
  - NEUTROPHIL COUNT INCREASED [None]
  - SYNCOPE [None]
  - TACHYCARDIA [None]
  - TRANSAMINASES INCREASED [None]
  - TREMOR [None]
  - TROPONIN INCREASED [None]
